FAERS Safety Report 6025537-3 (Version None)
Quarter: 2008Q4

REPORT INFORMATION
  Report Type: 
  Country: None (occurrence: None)
  Receive Date: 20081224
  Receipt Date: 20081216
  Transmission Date: 20090506
  Serious: Yes (Hospitalization)
  Sender: FDA-Public Use
  Company Number: 2008002963

PATIENT
  Age: 71 Year
  Sex: Female
  Weight: 37 kg

DRUGS (5)
  1. ERLOTINIB (ERLOTINIB) [Suspect]
     Indication: LUNG ADENOCARCINOMA
     Dosage: 150 MG, QD; ORAL
     Route: 048
     Dates: start: 20080925, end: 20081104
  2. OXYCONTIN [Concomitant]
  3. DEPAKENE [Concomitant]
  4. GLYCYRON (GLYCYRON) [Concomitant]
  5. MAGMITT (MAGNESIUM OXIDE) [Concomitant]

REACTIONS (3)
  - CONSTIPATION [None]
  - NEUTROPENIA [None]
  - NO THERAPEUTIC RESPONSE [None]
